FAERS Safety Report 5135351-9 (Version None)
Quarter: 2006Q4

REPORT INFORMATION
  Report Type: 
  Country: None (occurrence: None)
  Receive Date: 20061026
  Receipt Date: 20060309
  Transmission Date: 20070319
  Serious: Yes (Hospitalization)
  Sender: FDA-Public Use
  Company Number: US-GLAXOSMITHKLINE-A0596930A

PATIENT
  Age: 64 Year
  Sex: Female

DRUGS (7)
  1. IMITREX [Suspect]
     Indication: MIGRAINE
     Route: 045
     Dates: start: 20050101
  2. IMITREX [Suspect]
     Dosage: 6MG AS REQUIRED
     Route: 058
  3. INDERAL [Concomitant]
  4. PREMARIN [Concomitant]
  5. LORTAB [Concomitant]
  6. ZOCOR [Concomitant]
  7. VALIUM [Concomitant]

REACTIONS (3)
  - DRUG INEFFECTIVE [None]
  - HEART RATE INCREASED [None]
  - OVERDOSE [None]
